FAERS Safety Report 4648445-9 (Version None)
Quarter: 2005Q2

REPORT INFORMATION
  Report Type: 
  Country: None (occurrence: None)
  Receive Date: 20050427
  Receipt Date: 20050414
  Transmission Date: 20051028
  Serious: Yes (Life-Threatening)
  Sender: FDA-Public Use
  Company Number: JP_050306193

PATIENT
  Age: 73 Year
  Sex: Female
  Weight: 48 kg

DRUGS (10)
  1. EVISTA [Suspect]
     Indication: OSTEOPOROSIS
     Dosage: 60 MG/L DAY
     Dates: start: 20050224, end: 20050323
  2. PANTOSIN (PANTETHINE) [Concomitant]
  3. GASMOTIN (MOSAPRIDE CITRATE) [Concomitant]
  4. PREDNISOLONE [Concomitant]
  5. BIOFERMIN R (STREPTOCOCCUS FAECALIS) [Concomitant]
  6. TOUGHMAC E [Concomitant]
  7. LENDORM [Concomitant]
  8. MAGNESIUM OXIDE [Concomitant]
  9. GOSHAJINKIGAN [Concomitant]
  10. VOLTAREN [Concomitant]

REACTIONS (9)
  - BLOOD CHOLESTEROL INCREASED [None]
  - BLOOD PRESSURE DECREASED [None]
  - BLOOD TRIGLYCERIDES INCREASED [None]
  - DEEP VEIN THROMBOSIS [None]
  - FEELING ABNORMAL [None]
  - HIGH DENSITY LIPOPROTEIN DECREASED [None]
  - PALLOR [None]
  - PULMONARY EMBOLISM [None]
  - PULMONARY HYPERTENSION [None]
